FAERS Safety Report 16290521 (Version 3)
Quarter: 2019Q2

REPORT INFORMATION
  Report Type: Report from Study
  Country: ES (occurrence: ES)
  Receive Date: 20190509
  Receipt Date: 20190513
  Transmission Date: 20190711
  Serious: Yes (Death, Life-Threatening, Hospitalization)
  Sender: FDA-Public Use
  Company Number: ES-B.I. PHARMACEUTICALS,INC./RIDGEFIELD-2019-BI-008899

PATIENT
  Age: 69 Year
  Sex: Male
  Weight: 72 kg

DRUGS (1)
  1. NINTEDANIB [Suspect]
     Active Substance: NINTEDANIB
     Indication: INTERSTITIAL LUNG DISEASE
     Route: 048
     Dates: start: 20170619, end: 20190226

REACTIONS (4)
  - Pneumonia [Recovered/Resolved with Sequelae]
  - Pseudomembranous colitis [Recovered/Resolved]
  - Pulmonary fibrosis [Fatal]
  - Respiratory arrest [Recovered/Resolved]

NARRATIVE: CASE EVENT DATE: 20190224
